FAERS Safety Report 5900897-X (Version None)
Quarter: 2008Q3

REPORT INFORMATION
  Report Type: 
  Country: None (occurrence: None)
  Receive Date: 20080929
  Receipt Date: 20080922
  Transmission Date: 20090109
  Serious: Yes (Hospitalization, Other)
  Sender: FDA-Public Use
  Company Number: PHNU2008DE01573

PATIENT
  Age: 68 Year
  Sex: Male

DRUGS (5)
  1. ZOMETA [Suspect]
     Indication: METASTASES TO BONE
     Dosage: 4 MG EVERY 4 WEEKS
     Route: 042
     Dates: start: 20070901, end: 20071201
  2. IRINOTECAN HCL [Concomitant]
     Indication: COLON CANCER METASTATIC
     Dosage: 330 MG, BIW
     Route: 042
     Dates: start: 20071001, end: 20080430
  3. BEVACIZUMAB [Concomitant]
     Indication: COLON CANCER METASTATIC
     Dosage: 385 MG, BIW
     Route: 042
     Dates: start: 20071001, end: 20080430
  4. LEVOTHYROXINE SODIUM [Concomitant]
     Dosage: 0.075 MG PER DAY
     Route: 048
  5. ASPIRIN [Concomitant]
     Dosage: 100MG PER DAY
     Route: 048

REACTIONS (12)
  - ANAESTHESIA [None]
  - DEBRIDEMENT [None]
  - GASTROINTESTINAL TUBE INSERTION [None]
  - IMPAIRED HEALING [None]
  - OSTEONECROSIS [None]
  - OSTEOSYNTHESIS [None]
  - OSTEOTOMY [None]
  - PAIN IN EXTREMITY [None]
  - PATHOLOGICAL FRACTURE [None]
  - PLASTIC SURGERY [None]
  - RADIOTHERAPY TO BONE [None]
  - TOOTH EXTRACTION [None]
